FAERS Safety Report 6985474-4 (Version None)
Quarter: 2010Q3

REPORT INFORMATION
  Report Type: 
  Country: None (occurrence: None)
  Receive Date: 20100915
  Receipt Date: 20100907
  Transmission Date: 20110219
  Serious: Yes (Hospitalization)
  Sender: FDA-Public Use
  Company Number: B0524698A

PATIENT
  Sex: Female
  Weight: 100 kg

DRUGS (1)
  1. ZYBAN [Suspect]
     Route: 048
     Dates: start: 20070114, end: 20070222

REACTIONS (7)
  - DECREASED APPETITE [None]
  - DEPRESSION [None]
  - DISTURBANCE IN ATTENTION [None]
  - INSOMNIA [None]
  - OBSESSIVE THOUGHTS [None]
  - SELF ESTEEM DECREASED [None]
  - SUICIDAL IDEATION [None]
